FAERS Safety Report 24146233 (Version 2)
Quarter: 2024Q3

REPORT INFORMATION
  Report Type: Spontaneous
  Country: US (occurrence: US)
  Receive Date: 20240729
  Receipt Date: 20240821
  Transmission Date: 20241017
  Serious: No
  Sender: NOVARTIS
  Company Number: US-002147023-NVSC2024US153752

PATIENT

DRUGS (1)
  1. COSENTYX [Suspect]
     Active Substance: SECUKINUMAB
     Indication: Hidradenitis
     Dosage: 1 DOSAGE FORM, QW
     Route: 065

REACTIONS (7)
  - Dyspepsia [Unknown]
  - Throat irritation [Unknown]
  - Polymenorrhoea [Unknown]
  - Heavy menstrual bleeding [Unknown]
  - Feeling abnormal [Unknown]
  - Diarrhoea [Unknown]
  - Hidradenitis [Unknown]
